FAERS Safety Report 10191211 (Version 1)
Quarter: 2014Q2

REPORT INFORMATION
  Report Type: Other
  Country: GB (occurrence: GB)
  Receive Date: 20140523
  Receipt Date: 20140523
  Transmission Date: 20141212
  Serious: Yes (Other)
  Sender: FDA-Public Use
  Company Number: GB-PERRIGO-14GB005087

PATIENT
  Age: 56 Year
  Sex: Female
  Weight: 63.5 kg

DRUGS (1)
  1. IBUPROFEN 16028/0027 200 MG [Suspect]
     Indication: BACK PAIN
     Dosage: 500 MG, UNK
     Route: 048
     Dates: start: 20140503, end: 20140504

REACTIONS (3)
  - Abdominal pain [Not Recovered/Not Resolved]
  - Diarrhoea [Unknown]
  - Faeces pale [Unknown]
